FAERS Safety Report 12942104 (Version 1)
Quarter: 2016Q4

REPORT INFORMATION
  Report Type: Report from Study
  Country: ES (occurrence: ES)
  Receive Date: 20161114
  Receipt Date: 20161114
  Transmission Date: 20170207
  Serious: Yes (Death, Hospitalization)
  Sender: FDA-Public Use
  Company Number: ES-ASTRAZENECA-2016SF09849

PATIENT
  Age: 27055 Day
  Sex: Female
  Weight: 68 kg

DRUGS (4)
  1. DEXAMETASONE [Concomitant]
     Active Substance: DEXAMETHASONE
     Dates: start: 20160926
  2. RIVOTRIL [Concomitant]
     Active Substance: CLONAZEPAM
     Dates: start: 20160920
  3. ACETYLSALICYLIC ACID [Concomitant]
     Active Substance: ASPIRIN
     Dates: start: 20160926
  4. GEFITINIB [Suspect]
     Active Substance: GEFITINIB
     Indication: SMALL CELL LUNG CANCER
     Route: 048
     Dates: start: 20160523

REACTIONS (4)
  - Dysarthria [Not Recovered/Not Resolved]
  - Encephalopathy [Fatal]
  - Headache [Not Recovered/Not Resolved]
  - Hemiparesis [Recovered/Resolved]

NARRATIVE: CASE EVENT DATE: 20160928
